FAERS Safety Report 25681036 (Version 1)
Quarter: 2025Q3

REPORT INFORMATION
  Report Type: Spontaneous
  Country: US (occurrence: None)
  Receive Date: 20250814
  Receipt Date: 20250814
  Transmission Date: 20251021
  Serious: No
  Sender: FDA-CTU
  Company Number: None

PATIENT
  Age: 70 Year
  Sex: Male
  Weight: 90.7 kg

DRUGS (2)
  1. CASODEX [Suspect]
     Active Substance: BICALUTAMIDE
  2. LEUPROLIDE ACETATE [Suspect]
     Active Substance: LEUPROLIDE ACETATE

REACTIONS (6)
  - Prostatic specific antigen increased [None]
  - Metastatic neoplasm [None]
  - Metastatic lymphoma [None]
  - Anaemia [None]
  - White blood cell count decreased [None]
  - Chronic kidney disease [None]

NARRATIVE: CASE EVENT DATE: 20250728
